FAERS Safety Report 9105220 (Version 1)
Quarter: 2013Q1

REPORT INFORMATION
  Report Type: Spontaneous
  Country: GB (occurrence: GB)
  Receive Date: 20130220
  Receipt Date: 20130220
  Transmission Date: 20140127
  Serious: No
  Sender: FDA-Public Use
  Company Number: PHFR2013GB001161

PATIENT
  Age: 3 Year
  Sex: Female

DRUGS (1)
  1. LAMISIL [Suspect]
     Dosage: 250 MG PER DAY

REACTIONS (2)
  - Drug administered to patient of inappropriate age [Unknown]
  - Wrong technique in drug usage process [Unknown]
